FAERS Safety Report 13066545 (Version 1)
Quarter: 2016Q4

REPORT INFORMATION
  Report Type: Spontaneous
  Country: GB (occurrence: GB)
  Receive Date: 20161227
  Receipt Date: 20161227
  Transmission Date: 20170207
  Serious: Yes (Other)
  Sender: FDA-Public Use
  Company Number: GB-TEVA-722139ACC

PATIENT
  Age: 56 Year
  Sex: Female
  Weight: 83 kg

DRUGS (4)
  1. BENDROFLUMETHIAZIDE [Concomitant]
     Active Substance: BENDROFLUMETHIAZIDE
     Dosage: 1 DOSAGE FORMS DAILY;
     Dates: start: 20160822, end: 20161121
  2. ATORVASTATIN [Concomitant]
     Active Substance: ATORVASTATIN
     Indication: HYPERCHOLESTEROLAEMIA
     Dosage: 1 DOSAGE FORMS DAILY; AT NIGHT.
     Dates: start: 20160822, end: 20161121
  3. CANDESARTAN [Concomitant]
     Active Substance: CANDESARTAN
     Dosage: 1 DOSAGE FORMS DAILY;
     Dates: start: 20160822, end: 20161121
  4. AMOXICILLIN. [Suspect]
     Active Substance: AMOXICILLIN
     Dates: start: 20161201

REACTIONS (1)
  - Swelling face [Recovered/Resolved]

NARRATIVE: CASE EVENT DATE: 20161202
